FAERS Safety Report 6864135-6 (Version None)
Quarter: 2010Q3

REPORT INFORMATION
  Report Type: 
  Country: None (occurrence: None)
  Receive Date: 20100721
  Receipt Date: 20080319
  Transmission Date: 20110219
  Serious: No
  Sender: FDA-Public Use
  Company Number: US-PFIZER INC-2008026014

PATIENT
  Sex: Female
  Weight: 97.1 kg

DRUGS (9)
  1. CHANTIX [Suspect]
     Indication: SMOKING CESSATION THERAPY
     Dates: start: 20080311
  2. LIPITOR [Concomitant]
  3. CELEXA [Concomitant]
  4. OMEPRAZOLE [Concomitant]
  5. RELAFEN [Concomitant]
  6. CHLORZOXAZONE [Concomitant]
  7. SYNTHROID [Concomitant]
  8. DARVOCET [Concomitant]
  9. XANAX [Concomitant]

REACTIONS (1)
  - NAUSEA [None]
